FAERS Safety Report 10764465 (Version 1)
Quarter: 2015Q1

REPORT INFORMATION
  Report Type: Spontaneous
  Country: US (occurrence: US)
  Receive Date: 20150205
  Receipt Date: 20150205
  Transmission Date: 20150721
  Serious: No
  Sender: FDA-Public Use
  Company Number: US-AMGEN-USASP2015008436

PATIENT
  Age: 65 Year
  Sex: Male

DRUGS (5)
  1. TRIAMCINOLONE                      /00031902/ [Concomitant]
     Indication: PSORIASIS
  2. EUCERIN                            /00021201/ [Concomitant]
     Indication: PSORIASIS
  3. CLOBETASOL [Concomitant]
     Active Substance: CLOBETASOL
     Indication: PSORIASIS
  4. ENBREL [Suspect]
     Active Substance: ETANERCEPT
     Indication: PSORIASIS
     Dosage: UNK UNK, ONCE EVERY 8 DAYS
     Route: 065
     Dates: start: 20140812
  5. ELIDEL [Concomitant]
     Active Substance: PIMECROLIMUS
     Indication: PSORIASIS
     Dosage: UNK

REACTIONS (2)
  - Nasopharyngitis [Unknown]
  - Inappropriate schedule of drug administration [Unknown]

NARRATIVE: CASE EVENT DATE: 201501
